FAERS Safety Report 19930117 (Version 1)
Quarter: 2021Q4

REPORT INFORMATION
  Report Type: Report from Study
  Country: BR (occurrence: BR)
  Receive Date: 20211008
  Receipt Date: 20211008
  Transmission Date: 20220303
  Serious: Yes (Other)
  Sender: FDA-Public Use
  Company Number: BR-JNJFOC-20210320764

PATIENT
  Age: 53 Year
  Sex: Female
  Weight: 69 kg

DRUGS (10)
  1. SIMPONI [Suspect]
     Active Substance: GOLIMUMAB
     Indication: Rheumatoid arthritis
     Route: 058
     Dates: start: 20200921
  2. HYDROXYCHLOROQUINE SULFATE [Concomitant]
     Active Substance: HYDROXYCHLOROQUINE SULFATE
  3. METHOTREXATE [Concomitant]
     Active Substance: METHOTREXATE
  4. WARFARIN SODIUM [Concomitant]
     Active Substance: WARFARIN SODIUM
  5. DULOXETINE [Concomitant]
     Active Substance: DULOXETINE
  6. PURAN [Concomitant]
     Active Substance: LEVOTHYROXINE SODIUM
  7. DEFLAZACORT [Concomitant]
     Active Substance: DEFLAZACORT
  8. AMLODIPINE BESYLATE\PERINDOPRIL ARGININE [Concomitant]
     Active Substance: AMLODIPINE BESYLATE\PERINDOPRIL ARGININE
  9. ESOMEPRAZOLE. [Concomitant]
     Active Substance: ESOMEPRAZOLE MAGNESIUM
  10. GLYCOPYRRONIUM\INDACATEROL [Concomitant]
     Active Substance: GLYCOPYRRONIUM\INDACATEROL

REACTIONS (1)
  - Skin cancer [Unknown]

NARRATIVE: CASE EVENT DATE: 20201201
